FAERS Safety Report 21669560 (Version 3)
Quarter: 2023Q2

REPORT INFORMATION
  Report Type: Report from Study
  Country: US (occurrence: None)
  Receive Date: 20221201
  Receipt Date: 20230612
  Transmission Date: 20230722
  Serious: Yes (Other)
  Sender: FDA-Public Use
  Company Number: US-Merck Healthcare KGaA-9329442

PATIENT
  Age: 65 Year
  Sex: Female

DRUGS (2)
  1. MAVENCLAD [Suspect]
     Active Substance: CLADRIBINE
     Indication: Multiple sclerosis
     Dosage: YEAR ONE MONTH ONE THERAPY
     Route: 048
     Dates: start: 202204
  2. MAVENCLAD [Suspect]
     Active Substance: CLADRIBINE
     Dosage: YEAR ONE MONTH TWO THERAPY
     Route: 048
     Dates: start: 202205

REACTIONS (13)
  - COVID-19 [Recovered/Resolved]
  - Thrombosis [Unknown]
  - B-lymphocyte count decreased [Unknown]
  - T-lymphocyte count decreased [Unknown]
  - Ear infection [Recovered/Resolved]
  - Ear haemorrhage [Unknown]
  - Conjunctivitis [Unknown]
  - Urinary tract infection [Recovered/Resolved]
  - Tongue discomfort [Unknown]
  - Tympanic membrane perforation [Unknown]
  - Pain in extremity [Recovered/Resolved]
  - Condition aggravated [Recovered/Resolved]
  - Multiple sclerosis relapse [Unknown]

NARRATIVE: CASE EVENT DATE: 20220101
